FAERS Safety Report 5823052-0 (Version None)
Quarter: 2008Q3

REPORT INFORMATION
  Report Type: 
  Country: None (occurrence: None)
  Receive Date: 20080725
  Receipt Date: 20070824
  Transmission Date: 20090109
  Serious: No
  Sender: FDA-Public Use
  Company Number: US-AMGEN-KDL240433

PATIENT
  Sex: Female
  Weight: 65.8 kg

DRUGS (7)
  1. PROCRIT [Suspect]
     Indication: ANAEMIA
     Dates: start: 20070601, end: 20070701
  2. BYETTA [Concomitant]
     Dates: start: 20050801
  3. GLUCOPHAGE [Concomitant]
  4. CARDURA [Concomitant]
  5. DIAZEM [Concomitant]
  6. ZETIA [Concomitant]
  7. UNSPECIFIED MEDICATION [Concomitant]

REACTIONS (1)
  - GLYCOSYLATED HAEMOGLOBIN INCREASED [None]
